FAERS Safety Report 17097304 (Version 2)
Quarter: 2019Q4

REPORT INFORMATION
  Report Type: Report from Study
  Country: CA (occurrence: CA)
  Receive Date: 20191202
  Receipt Date: 20191216
  Transmission Date: 20200122
  Serious: Yes (Hospitalization, Other)
  Sender: FDA-Public Use
  Company Number: CA-BRISTOL-MYERS SQUIBB COMPANY-BMS-2019-023946

PATIENT
  Age: 52 Year
  Sex: Female

DRUGS (1)
  1. ABATACEPT [Suspect]
     Active Substance: ABATACEPT
     Indication: RHEUMATOID ARTHRITIS
     Dosage: 1000 MILLIGRAM, Q4WK
     Route: 042
     Dates: start: 20190222

REACTIONS (11)
  - Pneumonia [Unknown]
  - Kidney infection [Unknown]
  - Dizziness [Unknown]
  - Abdominal pain lower [Unknown]
  - Vomiting [Unknown]
  - Uterine disorder [Unknown]
  - Postoperative wound infection [Recovering/Resolving]
  - Impaired healing [Unknown]
  - Urinary tract infection [Unknown]
  - Nausea [Unknown]
  - Pain in extremity [Unknown]

NARRATIVE: CASE EVENT DATE: 20190223
